FAERS Safety Report 7375604-7 (Version None)
Quarter: 2011Q1

REPORT INFORMATION
  Report Type: 
  Country: None (occurrence: None)
  Receive Date: 20110325
  Receipt Date: 20100917
  Transmission Date: 20110831
  Serious: No
  Sender: FDA-Public Use
  Company Number: US-BAYER-2011-025509

PATIENT
  Sex: Male
  Weight: 190 kg

DRUGS (2)
  1. ALEVE [Suspect]
     Indication: BACK PAIN
     Dosage: UNK
     Route: 048
     Dates: start: 20100903, end: 20100917
  2. DYAZIDE [Concomitant]

REACTIONS (1)
  - NO ADVERSE EVENT [None]
